FAERS Safety Report 4564608-5 (Version None)
Quarter: 2005Q1

REPORT INFORMATION
  Report Type: 
  Country: None (occurrence: None)
  Receive Date: 20050126
  Receipt Date: 20050120
  Transmission Date: 20050727
  Serious: Yes (Hospitalization)
  Sender: FDA-Public Use
  Company Number: 2005CG00163

PATIENT
  Age: 83 Year
  Sex: Female

DRUGS (8)
  1. OMEPRAZOLE [Suspect]
     Dates: start: 20041127, end: 20041227
  2. DUPHALAC [Suspect]
  3. STABLON [Suspect]
     Dates: start: 20041208
  4. FLUCONAZOLE [Suspect]
     Dates: start: 20041127
  5. CAPTOPRIL AND HYDROCHLOROTHIAZIDE [Suspect]
     Dates: end: 20041215
  6. ATORVASTATIN CALCIUM [Suspect]
  7. LANTUS [Suspect]
  8. LANSOYL [Suspect]

REACTIONS (2)
  - HYPERKALAEMIA [None]
  - HYPONATRAEMIA [None]
